FAERS Safety Report 5821619-7 (Version None)
Quarter: 2008Q3

REPORT INFORMATION
  Report Type: 
  Country: None (occurrence: None)
  Receive Date: 20080714
  Receipt Date: 20070611
  Transmission Date: 20090109
  Serious: Yes (Hospitalization)
  Sender: FDA-Public Use
  Company Number: 497583

PATIENT
  Age: 52 Year
  Sex: Female

DRUGS (4)
  1. BONIVA [Suspect]
     Indication: OSTEOPOROSIS PROPHYLAXIS
     Dosage: 150 MG 1 PER MONTH ORAL
     Route: 047
     Dates: start: 20060801, end: 20070301
  2. ALLEGRA [Concomitant]
  3. MULTIVITAMIN [Concomitant]
  4. CALCIUM SUPPLEMENT (CALCIUM) [Concomitant]

REACTIONS (3)
  - CHEST PAIN [None]
  - FLATULENCE [None]
  - STOMACH DISCOMFORT [None]
